FAERS Safety Report 4335295-6 (Version None)
Quarter: 2004Q2

REPORT INFORMATION
  Report Type: 
  Country: None (occurrence: None)
  Receive Date: 20040408
  Receipt Date: 20040408
  Transmission Date: 20050107
  Serious: Yes (Other)
  Sender: FDA-Public Use
  Company Number: None

PATIENT
  Age: 61 Year
  Sex: Male
  Weight: 50.8 kg

DRUGS (1)
  1. LOPINAVIR/RITONAVIR [Suspect]
     Indication: HIV INFECTION
     Dosage: 3 BID, 3 BID, ORAL
     Route: 048
     Dates: start: 20040106, end: 20040123

REACTIONS (1)
  - COUGH [None]
